FAERS Safety Report 23726776 (Version 1)
Quarter: 2024Q2

REPORT INFORMATION
  Report Type: Spontaneous
  Country: US (occurrence: US)
  Receive Date: 20240410
  Receipt Date: 20240410
  Transmission Date: 20240716
  Serious: Yes (Other)
  Sender: FDA-Public Use
  Company Number: US-SUN PHARMACEUTICAL INDUSTRIES LTD-2024R1-440227

PATIENT
  Age: 91 Year
  Sex: Male

DRUGS (2)
  1. ERLOTINIB [Suspect]
     Active Substance: ERLOTINIB
     Indication: Lung adenocarcinoma
     Dosage: 150 MILLIGRAM, DAILY
     Route: 065
     Dates: start: 201312
  2. ERLOTINIB [Suspect]
     Active Substance: ERLOTINIB
     Dosage: 100 MILLIGRAM, DAILY
     Route: 065
     Dates: start: 201412

REACTIONS (3)
  - Disease progression [Unknown]
  - Diarrhoea [Unknown]
  - EGFR gene mutation [Unknown]
